FAERS Safety Report 25117735 (Version 1)
Quarter: 2025Q1

REPORT INFORMATION
  Report Type: Spontaneous
  Country: US (occurrence: None)
  Receive Date: 20250324
  Receipt Date: 20250324
  Transmission Date: 20250408
  Serious: Yes (Hospitalization, Disabling)
  Sender: FDA-CTU
  Company Number: None

PATIENT
  Age: 70 Year
  Sex: Male
  Weight: 92.25 kg

DRUGS (1)
  1. KEYTRUDA [Suspect]
     Active Substance: PEMBROLIZUMAB
     Indication: Adenocarcinoma
     Dates: start: 20250210, end: 20250305

REACTIONS (3)
  - General physical health deterioration [None]
  - Gait inability [None]
  - Metastases to lymph nodes [None]

NARRATIVE: CASE EVENT DATE: 20250210
